FAERS Safety Report 15926628 (Version 1)
Quarter: 2019Q1

REPORT INFORMATION
  Report Type: Spontaneous
  Country: US (occurrence: US)
  Receive Date: 20190206
  Receipt Date: 20190206
  Transmission Date: 20190417
  Serious: No
  Sender: FDA-Public Use
  Company Number: US-SUNOVION-2019SUN000377

PATIENT
  Sex: Male

DRUGS (1)
  1. APTIOM [Suspect]
     Active Substance: ESLICARBAZEPINE ACETATE
     Route: 048

REACTIONS (3)
  - Muscle twitching [Unknown]
  - Tremor [Unknown]
  - Hyponatraemia [Unknown]
